FAERS Safety Report 21896671 (Version 1)
Quarter: 2023Q1

REPORT INFORMATION
  Report Type: Spontaneous
  Country: US (occurrence: None)
  Receive Date: 20230120
  Receipt Date: 20230120
  Transmission Date: 20230417
  Serious: Yes (Hospitalization)
  Sender: FDA-Public Use
  Company Number: None

PATIENT
  Age: 73 Year
  Sex: Female
  Weight: 75.48 kg

DRUGS (18)
  1. LENALIDOMIDE [Suspect]
     Active Substance: LENALIDOMIDE
     Indication: Plasma cell myeloma
     Dosage: OTHER FREQUENCY : 3W, 1W OFF;?
     Route: 048
  2. ACYCLOVIR [Concomitant]
     Active Substance: ACYCLOVIR
  3. ALLOPURINOL [Concomitant]
     Active Substance: ALLOPURINOL
  4. BACTRIM [Concomitant]
     Active Substance: SULFAMETHOXAZOLE\TRIMETHOPRIM
  5. CARBONATE [Concomitant]
  6. COLLAGEN [Concomitant]
     Active Substance: COLLAGEN
  7. DARZALEX [Concomitant]
     Active Substance: DARATUMUMAB
  8. DEXAMETHASONE [Concomitant]
     Active Substance: DEXAMETHASONE
  9. ELIQUIS [Concomitant]
     Active Substance: APIXABAN
  10. METOPROLOL [Concomitant]
     Active Substance: METOPROLOL
  11. NORVASC [Concomitant]
     Active Substance: AMLODIPINE BESYLATE
  12. PEPCID AC [Concomitant]
     Active Substance: FAMOTIDINE
  13. HERBALS\TURMERIC [Concomitant]
     Active Substance: HERBALS\TURMERIC
  14. VITAMIN D3 [Concomitant]
     Active Substance: CHOLECALCIFEROL
  15. SEVELAMER [Concomitant]
     Active Substance: SEVELAMER
  16. ZINC [Concomitant]
     Active Substance: ZINC
  17. TYLENOL [Suspect]
     Active Substance: ACETAMINOPHEN
  18. VELCADE [Concomitant]
     Active Substance: BORTEZOMIB

REACTIONS (3)
  - Dialysis [None]
  - Renal disorder [None]
  - Therapy interrupted [None]
